FAERS Safety Report 6390254-7 (Version None)
Quarter: 2009Q4

REPORT INFORMATION
  Report Type: 
  Country: None (occurrence: None)
  Receive Date: 20091006
  Receipt Date: 20090930
  Transmission Date: 20100525
  Serious: Yes (Life-Threatening)
  Sender: FDA-Public Use
  Company Number: B0596338A

PATIENT
  Sex: Female

DRUGS (3)
  1. RANIDIL [Suspect]
     Indication: DRUG USE FOR UNKNOWN INDICATION
     Route: 042
     Dates: start: 20090701, end: 20090923
  2. KYTRIL [Suspect]
     Indication: VOMITING
     Route: 042
     Dates: start: 20090701, end: 20090923
  3. AVASTIN [Suspect]
     Indication: BREAST CANCER
     Route: 042
     Dates: start: 20090701, end: 20090923

REACTIONS (3)
  - ANAPHYLACTIC SHOCK [None]
  - HYPOTENSION [None]
  - RASH ERYTHEMATOUS [None]
